FAERS Safety Report 7008202-5 (Version None)
Quarter: 2010Q3

REPORT INFORMATION
  Report Type: 
  Country: None (occurrence: None)
  Receive Date: 20100920
  Receipt Date: 20100903
  Transmission Date: 20110219
  Serious: Yes (Other)
  Sender: FDA-Public Use
  Company Number: DSA_43607_2010

PATIENT
  Sex: Male

DRUGS (12)
  1. DILTIAZEM HYDROCHLORIDE [Suspect]
     Indication: HYPERTENSION
     Dosage: (100 MG QD ORAL)
     Route: 048
     Dates: start: 20081009, end: 20081128
  2. FUROSEMIDE [Suspect]
     Indication: CARDIOVASCULAR EVENT PROPHYLAXIS
     Dosage: (20 MG QD ORAL)
     Route: 048
     Dates: start: 20081029, end: 20081128
  3. ETIZOLAM (ETIZOLAM) [Suspect]
     Indication: ANXIOLYTIC THERAPY
     Dosage: (2 MG QD ORAL), (DF)
     Route: 048
     Dates: start: 20081009, end: 20081128
  4. ETIZOLAM (ETIZOLAM) [Suspect]
     Indication: ANXIOLYTIC THERAPY
     Dosage: (2 MG QD ORAL), (DF)
     Route: 048
     Dates: start: 20081202
  5. ASPIRIN [Suspect]
     Indication: ANTIPLATELET THERAPY
     Dosage: (100 MG QD ORAL)
     Route: 048
     Dates: start: 20081009, end: 20081128
  6. SPIRONOLACTONE [Suspect]
     Indication: CARDIOVASCULAR EVENT PROPHYLAXIS
     Dosage: (25 MG QD ORAL)
     Route: 048
     Dates: start: 20081009, end: 20081128
  7. TELMISARTAN [Suspect]
     Indication: HYPERTENSION
     Dosage: (40 MG QD ORAL)
     Route: 048
     Dates: start: 20081009, end: 20081128
  8. ATORVASTATIN (ATORVASTATIN) [Suspect]
     Indication: LIPIDS DECREASED
     Dosage: (10 MG QD ORAL)
     Route: 048
     Dates: start: 20081009, end: 20081128
  9. ISOSORBIDE MONONITRATE [Suspect]
     Indication: CORONARY ARTERY DILATATION
     Dosage: (40 MG QD ORAL)
     Route: 048
     Dates: start: 20081009, end: 20081128
  10. WARFARIN SODIUM [Suspect]
     Indication: ANTICOAGULANT THERAPY
     Dosage: (1 MG QD ORAL)
     Route: 048
     Dates: start: 20081009, end: 20081128
  11. FAMOTIDINE [Concomitant]
  12. MAGNESIUM OXIDE [Concomitant]

REACTIONS (1)
  - HEPATITIS ACUTE [None]
